FAERS Safety Report 6980614-5 (Version None)
Quarter: 2010Q3

REPORT INFORMATION
  Report Type: 
  Country: None (occurrence: None)
  Receive Date: 20100914
  Receipt Date: 20100901
  Transmission Date: 20110219
  Serious: Yes (Disabling, Other)
  Sender: FDA-Public Use
  Company Number: AU-NAPPMUNDI-USA_2008_0033508

PATIENT
  Sex: Male

DRUGS (35)
  1. BLINDED BTDS 10 MG [Suspect]
     Indication: POST HERPETIC NEURALGIA
     Dosage: 5 MCG, Q1H
     Route: 062
     Dates: start: 20080606, end: 20080613
  2. BLINDED BTDS 20 MG [Suspect]
     Indication: POST HERPETIC NEURALGIA
     Dosage: 5 MCG, Q1H
     Route: 062
     Dates: start: 20080606, end: 20080613
  3. BLINDED BTDS 30 MG [Suspect]
     Indication: POST HERPETIC NEURALGIA
     Dosage: 5 MCG, Q1H
     Route: 062
     Dates: start: 20080606, end: 20080613
  4. BLINDED BTDS 40 MG [Suspect]
     Indication: POST HERPETIC NEURALGIA
     Dosage: 5 MCG, Q1H
     Route: 062
     Dates: start: 20080606, end: 20080613
  5. BLINDED BTDS PATCH [Suspect]
     Indication: POST HERPETIC NEURALGIA
     Dosage: 5 MCG, Q1H
     Route: 062
     Dates: start: 20080606, end: 20080613
  6. BLINDED NONE [Suspect]
     Indication: POST HERPETIC NEURALGIA
     Dosage: 5 MCG, Q1H
     Route: 062
     Dates: start: 20080606, end: 20080613
  7. BLINDED PLACEBO TRANSDERMAL PATCH [Suspect]
     Indication: POST HERPETIC NEURALGIA
     Dosage: 5 MCG, Q1H
     Route: 062
     Dates: start: 20080606, end: 20080613
  8. BLINDED BTDS 10 MG [Suspect]
     Dosage: BTDS 10MCG/HR VS PLACEBO
     Route: 062
     Dates: start: 20080613, end: 20080620
  9. BLINDED BTDS 20 MG [Suspect]
     Dosage: BTDS 10MCG/HR VS PLACEBO
     Route: 062
     Dates: start: 20080613, end: 20080620
  10. BLINDED BTDS 30 MG [Suspect]
     Dosage: BTDS 10MCG/HR VS PLACEBO
     Route: 062
     Dates: start: 20080613, end: 20080620
  11. BLINDED BTDS 40 MG [Suspect]
     Dosage: BTDS 10MCG/HR VS PLACEBO
     Route: 062
     Dates: start: 20080613, end: 20080620
  12. BLINDED BTDS PATCH [Suspect]
     Dosage: BTDS 10MCG/HR VS PLACEBO
     Route: 062
     Dates: start: 20080613, end: 20080620
  13. BLINDED NONE [Suspect]
     Dosage: BTDS 10MCG/HR VS PLACEBO
     Route: 062
     Dates: start: 20080613, end: 20080620
  14. BLINDED PLACEBO TRANSDERMAL PATCH [Suspect]
     Dosage: BTDS 10MCG/HR VS PLACEBO
     Route: 062
     Dates: start: 20080613, end: 20080620
  15. BLINDED BTDS 10 MG [Suspect]
     Dosage: BTDS 20MCG/HR VS PLACEBO
     Route: 062
     Dates: start: 20080620, end: 20080627
  16. BLINDED BTDS 20 MG [Suspect]
     Dosage: BTDS 20MCG/HR VS PLACEBO
     Route: 062
     Dates: start: 20080620, end: 20080627
  17. BLINDED BTDS 30 MG [Suspect]
     Dosage: BTDS 20MCG/HR VS PLACEBO
     Route: 062
     Dates: start: 20080620, end: 20080627
  18. BLINDED BTDS 40 MG [Suspect]
     Dosage: BTDS 20MCG/HR VS PLACEBO
     Route: 062
     Dates: start: 20080620, end: 20080627
  19. BLINDED BTDS PATCH [Suspect]
     Dosage: BTDS 20MCG/HR VS PLACEBO
     Route: 062
     Dates: start: 20080620, end: 20080627
  20. BLINDED NONE [Suspect]
     Dosage: BTDS 20MCG/HR VS PLACEBO
     Route: 062
     Dates: start: 20080620, end: 20080627
  21. BLINDED PLACEBO TRANSDERMAL PATCH [Suspect]
     Dosage: BTDS 20MCG/HR VS PLACEBO
     Route: 062
     Dates: start: 20080620, end: 20080627
  22. BLINDED BTDS 10 MG [Suspect]
     Dosage: BTDS 30MCG/HR VS PLACEBO
     Route: 062
     Dates: start: 20080627, end: 20080727
  23. BLINDED BTDS 20 MG [Suspect]
     Dosage: BTDS 30MCG/HR VS PLACEBO
     Route: 062
     Dates: start: 20080627, end: 20080727
  24. BLINDED BTDS 30 MG [Suspect]
     Dosage: BTDS 30MCG/HR VS PLACEBO
     Route: 062
     Dates: start: 20080627, end: 20080727
  25. BLINDED BTDS 40 MG [Suspect]
     Dosage: BTDS 30MCG/HR VS PLACEBO
     Route: 062
     Dates: start: 20080627, end: 20080727
  26. BLINDED BTDS PATCH [Suspect]
     Dosage: BTDS 30MCG/HR VS PLACEBO
     Route: 062
     Dates: start: 20080627, end: 20080727
  27. BLINDED NONE [Suspect]
     Dosage: BTDS 30MCG/HR VS PLACEBO
     Route: 062
     Dates: start: 20080627, end: 20080727
  28. BLINDED PLACEBO TRANSDERMAL PATCH [Suspect]
     Dosage: BTDS 30MCG/HR VS PLACEBO
     Route: 062
     Dates: start: 20080627, end: 20080727
  29. KARVEA [Concomitant]
     Dosage: UNK
     Dates: start: 20040101
  30. NEXIUM                             /01479303/ [Concomitant]
     Dosage: UNK
     Dates: start: 20060101
  31. ACETYLSALICYLIC ACID [Concomitant]
     Dosage: UNK
     Dates: start: 20030101
  32. PRAVASTATIN [Concomitant]
     Dosage: UNK
     Dates: start: 20040101
  33. SPIRIVA [Concomitant]
     Dosage: UNK
     Dates: start: 20070601
  34. VASOCARDOL [Concomitant]
     Dosage: UNK
     Dates: start: 19980101
  35. PULMICORT [Concomitant]
     Dosage: UNK
     Dates: start: 20070101

REACTIONS (1)
  - LUNG NEOPLASM [None]
